FAERS Safety Report 5502558-8 (Version None)
Quarter: 2007Q4

REPORT INFORMATION
  Report Type: 
  Country: None (occurrence: None)
  Receive Date: 20071031
  Receipt Date: 20071023
  Transmission Date: 20080405
  Serious: Yes (Other)
  Sender: FDA-Public Use
  Company Number: PHMT2007CA02089

PATIENT
  Age: 76 Year
  Sex: Female
  Weight: 37 kg

DRUGS (3)
  1. DIOVAN [Suspect]
     Indication: HYPERTENSION
     Dosage: 160 MG QD
     Dates: start: 20070919, end: 20071012
  2. TRIAZIDE [Suspect]
     Dosage: 50-25 MG
  3. DIOVAN HCT [Suspect]
     Dosage: 160/12.5 MG
     Dates: start: 20071012, end: 20071023

REACTIONS (2)
  - BLOOD SODIUM DECREASED [None]
  - HYPONATRAEMIA [None]
